FAERS Safety Report 6128408-7 (Version None)
Quarter: 2009Q1

REPORT INFORMATION
  Report Type: 
  Country: None (occurrence: None)
  Receive Date: 20090323
  Receipt Date: 20090310
  Transmission Date: 20090719
  Serious: Yes (Life-Threatening, Hospitalization)
  Sender: FDA-Public Use
  Company Number: JP-ROCHE-608052

PATIENT
  Sex: Male
  Weight: 44 kg

DRUGS (16)
  1. CAPECITABINE [Suspect]
     Indication: COLON CANCER
     Route: 048
     Dates: start: 20080513, end: 20080526
  2. CAPECITABINE [Suspect]
     Dosage: DOSE INCREASED
     Route: 048
     Dates: start: 20080603, end: 20080616
  3. CAPECITABINE [Suspect]
     Route: 048
     Dates: start: 20080624, end: 20080702
  4. CAPECITABINE [Suspect]
     Route: 048
     Dates: start: 20080722, end: 20080726
  5. CAPECITABINE [Suspect]
     Route: 048
     Dates: start: 20080803, end: 20080816
  6. CAPECITABINE [Suspect]
     Route: 048
     Dates: start: 20080901, end: 20080914
  7. CAPECITABINE [Suspect]
     Route: 048
     Dates: start: 20081129, end: 20081212
  8. LOPEMIN [Concomitant]
     Dosage: NOTE: TAKEN AS NEEDED: 1 MG
     Route: 048
  9. TERRA-CORTRIL [Concomitant]
     Dosage: NOTE: DOSAGE ADJUSTED.
     Route: 061
  10. DEPAKENE [Concomitant]
     Dosage: FORM: SUSTAINED RELEASE TABLET.
     Route: 048
  11. DIOVAN [Concomitant]
     Route: 048
  12. CINAL [Concomitant]
     Dosage: FORM: ORAL FORMULATION (NOT OTHERWISE SPECIFIED).
     Route: 048
  13. SELOKEN [Concomitant]
     Route: 048
  14. BIO-THREE [Concomitant]
     Route: 048
  15. FLAVITAN [Concomitant]
     Route: 048
  16. VITANEURIN [Concomitant]
     Route: 048

REACTIONS (11)
  - ANAL PRURITUS [None]
  - CHEILITIS [None]
  - DIARRHOEA [None]
  - EPILEPSY [None]
  - EYELIDS PRURITUS [None]
  - NEUTROPHIL COUNT DECREASED [None]
  - PALMAR-PLANTAR ERYTHRODYSAESTHESIA SYNDROME [None]
  - PLATELET COUNT DECREASED [None]
  - SKIN EXFOLIATION [None]
  - STOMATITIS [None]
  - WHITE BLOOD CELL COUNT DECREASED [None]
